FAERS Safety Report 4807226-3 (Version None)
Quarter: 2005Q4

REPORT INFORMATION
  Report Type: 
  Country: None (occurrence: None)
  Receive Date: 20051020
  Receipt Date: 20051020
  Transmission Date: 20060501
  Serious: Yes (Hospitalization)
  Sender: FDA-Public Use
  Company Number: None

PATIENT
  Age: 57 Year
  Sex: Male
  Weight: 91.2 kg

DRUGS (8)
  1. TRAMADOL [Suspect]
  2. DIPHENHYDRAMINE HCL [Concomitant]
  3. ALOH/MGOH/SIMTH [Concomitant]
  4. IBUPROFEN [Concomitant]
  5. OMEPRAZOLE [Concomitant]
  6. RISPERIDONE [Concomitant]
  7. SERTRALINE HCL [Concomitant]
  8. TRAZODONE HCL [Concomitant]

REACTIONS (1)
  - RASH [None]
